FAERS Safety Report 8970366 (Version 1)
Quarter: 2012Q4

REPORT INFORMATION
  Report Type: Report from Study
  Country: AU (occurrence: AU)
  Receive Date: 20121217
  Receipt Date: 20121217
  Transmission Date: 20130627
  Serious: Yes (Other)
  Sender: FDA-Public Use
  Company Number: AU-ROCHE-1155266

PATIENT
  Age: 62 Year
  Sex: Female

DRUGS (10)
  1. TOCILIZUMAB [Suspect]
     Indication: RHEUMATOID ARTHRITIS
     Route: 042
     Dates: start: 20110718
  2. PROLIA [Concomitant]
     Indication: OSTEOPOROSIS
     Route: 058
     Dates: start: 20110330
  3. EZETROL [Concomitant]
     Dosage: In the evening
     Route: 048
  4. CARDIZEM [Concomitant]
     Dosage: In the morning
     Route: 048
  5. CRESTOR [Concomitant]
     Dosage: In the evening
     Route: 048
  6. TRITACE [Concomitant]
     Dosage: In the evening
     Route: 048
  7. ASPIRIN [Concomitant]
     Dosage: In the morning
     Route: 048
  8. SALAZOPYRINE [Concomitant]
     Dosage: 2 in morning and 2 in evening
     Route: 048
  9. EFFIENT [Concomitant]
     Dosage: In the morning
     Route: 048
  10. ARAVA [Concomitant]
     Route: 048

REACTIONS (7)
  - Nausea [Recovered/Resolved]
  - Urticaria [Recovered/Resolved]
  - Insomnia [Recovered/Resolved]
  - Joint swelling [Recovered/Resolved]
  - Arthralgia [Recovered/Resolved]
  - Hallucination [Recovered/Resolved]
  - Hot flush [Recovered/Resolved]
